FAERS Safety Report 20155168 (Version 4)
Quarter: 2024Q2

REPORT INFORMATION
  Report Type: Spontaneous
  Country: US (occurrence: None)
  Receive Date: 20211207
  Receipt Date: 20240618
  Transmission Date: 20240715
  Serious: No
  Sender: FDA-Public Use
  Company Number: 2021A804330

PATIENT
  Age: 21962 Day
  Sex: Female
  Weight: 87.5 kg

DRUGS (3)
  1. BYDUREON BCISE [Suspect]
     Active Substance: EXENATIDE
     Indication: Type 2 diabetes mellitus
     Route: 058
  2. BYDUREON [Suspect]
     Active Substance: EXENATIDE
     Indication: Type 2 diabetes mellitus
     Dosage: UNKNOWN
  3. LEVAQUIN [Concomitant]
     Active Substance: LEVOFLOXACIN

REACTIONS (10)
  - Injection site haemorrhage [Unknown]
  - Injection site discolouration [Unknown]
  - Nausea [Recovering/Resolving]
  - Urticaria [Unknown]
  - Glycosylated haemoglobin increased [Unknown]
  - Arthropathy [Unknown]
  - Vomiting [Unknown]
  - Injection site discharge [Unknown]
  - Incorrect dose administered by device [Unknown]
  - Device delivery system issue [Unknown]

NARRATIVE: CASE EVENT DATE: 20211027
